FAERS Safety Report 9792705 (Version 1)
Quarter: 2013Q4

REPORT INFORMATION
  Report Type: Spontaneous
  Country: US (occurrence: None)
  Receive Date: 20131231
  Receipt Date: 20131231
  Transmission Date: 20140711
  Serious: Yes (Hospitalization)
  Sender: FDA-Public Use
  Company Number: None

PATIENT
  Age: 54 Year
  Sex: Female
  Weight: 53.52 kg

DRUGS (2)
  1. ESTRING [Suspect]
     Indication: VULVOVAGINAL DRYNESS
     Dosage: QUARTERLY
     Route: 067
     Dates: start: 20130603
  2. ESTRING [Suspect]
     Indication: VULVOVAGINAL DISCOMFORT
     Dosage: QUARTERLY
     Route: 067
     Dates: start: 20130603

REACTIONS (2)
  - Abdominal adhesions [None]
  - Intestinal obstruction [None]
